FAERS Safety Report 20924827 (Version 2)
Quarter: 2022Q4

REPORT INFORMATION
  Report Type: Spontaneous
  Country: US (occurrence: US)
  Receive Date: 20220607
  Receipt Date: 20221216
  Transmission Date: 20230112
  Serious: No
  Sender: FDA-Public Use
  Company Number: US-PHARMAESSENTIA CORPORATION-US-2022-PEC-000526

PATIENT
  Sex: Female

DRUGS (2)
  1. BESREMI [Suspect]
     Active Substance: ROPEGINTERFERON ALFA-2B-NJFT
     Indication: Polycythaemia vera
     Dosage: 100 MILLIGRAM, EVERY 14 DAYS
     Route: 058
     Dates: start: 20220225
  2. BESREMI [Suspect]
     Active Substance: ROPEGINTERFERON ALFA-2B-NJFT
     Dosage: 50 MCG
     Route: 058
     Dates: start: 20220503

REACTIONS (5)
  - Myositis [Unknown]
  - Tendon injury [Unknown]
  - Haematocrit abnormal [Unknown]
  - Deep vein thrombosis [Unknown]
  - Fatigue [Unknown]
